FAERS Safety Report 21820716 (Version 1)
Quarter: 2023Q1

REPORT INFORMATION
  Report Type: Spontaneous
  Country: US (occurrence: US)
  Receive Date: 20230105
  Receipt Date: 20230105
  Transmission Date: 20230417
  Serious: No
  Sender: FDA-Public Use
  Company Number: US-PADAGIS-2022PAD01206

PATIENT

DRUGS (6)
  1. MUPIROCIN [Suspect]
     Active Substance: MUPIROCIN
     Indication: Staphylococcal infection
     Dosage: UNK
     Route: 061
  2. TACROLIMUS [Suspect]
     Active Substance: TACROLIMUS
     Indication: Hyper IgE syndrome
     Dosage: UNK
     Route: 061
  3. CEPHALEXIN [Suspect]
     Active Substance: CEPHALEXIN
     Indication: Staphylococcal infection
     Dosage: UNK
     Route: 048
  4. ERYTHROMYCIN [Suspect]
     Active Substance: ERYTHROMYCIN
     Indication: Staphylococcal infection
     Dosage: UNK
     Route: 048
  5. SULFAMETHOXAZOLE\TRIMETHOPRIM [Suspect]
     Active Substance: SULFAMETHOXAZOLE\TRIMETHOPRIM
     Indication: Staphylococcal infection
     Dosage: UNK, (5 COURSES)
     Route: 065
  6. SULFAMETHOXAZOLE\TRIMETHOPRIM [Suspect]
     Active Substance: SULFAMETHOXAZOLE\TRIMETHOPRIM
     Dosage: UNK
     Route: 048

REACTIONS (1)
  - Drug ineffective [Unknown]
